FAERS Safety Report 6727820-2 (Version None)
Quarter: 2010Q2

REPORT INFORMATION
  Report Type: 
  Country: None (occurrence: None)
  Receive Date: 20100512
  Receipt Date: 20100504
  Transmission Date: 20101027
  Serious: Yes (Other)
  Sender: FDA-Public Use
  Company Number: 1-22285911

PATIENT
  Age: 16 Year
  Sex: Female
  Weight: 59.4666 kg

DRUGS (1)
  1. SOLODYN [Suspect]
     Indication: ACNE
     Dosage: 65 MG, ONCE DAILY, ORAL
     Route: 048
     Dates: start: 20100105, end: 20100126

REACTIONS (4)
  - BRADYCARDIA [None]
  - ELECTROCARDIOGRAM P WAVE ABNORMAL [None]
  - LETHARGY [None]
  - SUPRAVENTRICULAR EXTRASYSTOLES [None]
